FAERS Safety Report 12664427 (Version 1)
Quarter: 2016Q3

REPORT INFORMATION
  Report Type: Spontaneous
  Country: UM (occurrence: US)
  Receive Date: 20160818
  Receipt Date: 20160818
  Transmission Date: 20161109
  Serious: Yes (Hospitalization, Other)
  Sender: FDA-Public Use
  Company Number: UM-BRISTOL-MYERS SQUIBB COMPANY-BMS-2016-068225

PATIENT
  Sex: Female
  Weight: 68 kg

DRUGS (1)
  1. COUMADIN [Suspect]
     Active Substance: WARFARIN SODIUM
     Indication: THROMBOSIS
     Dosage: UNK
     Route: 048
     Dates: start: 2012

REACTIONS (2)
  - Thrombosis [Unknown]
  - Back pain [Unknown]
